FAERS Safety Report 7965690-5 (Version None)
Quarter: 2011Q4

REPORT INFORMATION
  Report Type: 
  Country: None (occurrence: None)
  Receive Date: 20111208
  Receipt Date: 20111206
  Transmission Date: 20120403
  Serious: Yes (Other)
  Sender: FDA-Public Use
  Company Number: US-AMGEN-USASP2011062169

PATIENT
  Sex: Female
  Weight: 66.213 kg

DRUGS (1)
  1. NPLATE [Suspect]
     Indication: AUTOIMMUNE THROMBOCYTOPENIA
     Dosage: 70 MUG, QWK
     Route: 058
     Dates: start: 20100521, end: 20101104

REACTIONS (6)
  - VITH NERVE PARALYSIS [None]
  - DIPLOPIA [None]
  - NAUSEA [None]
  - PLATELET COUNT DECREASED [None]
  - VISUAL IMPAIRMENT [None]
  - DIZZINESS [None]
